FAERS Safety Report 5782139-1 (Version None)
Quarter: 2008Q2

REPORT INFORMATION
  Report Type: 
  Country: None (occurrence: None)
  Receive Date: 20080623
  Receipt Date: 20080616
  Transmission Date: 20081010
  Serious: Yes (Hospitalization, Other)
  Sender: FDA-Public Use
  Company Number: US-AMGEN-QUU287671

PATIENT
  Sex: Female

DRUGS (2)
  1. ENBREL [Suspect]
     Indication: RHEUMATOID ARTHRITIS
     Route: 058
  2. REMICADE [Concomitant]

REACTIONS (6)
  - BONE DENSITY DECREASED [None]
  - GALLBLADDER OPERATION [None]
  - GASTROINTESTINAL ULCER [None]
  - HYPERSENSITIVITY [None]
  - NODULE ON EXTREMITY [None]
  - RHEUMATOID ARTHRITIS [None]
